FAERS Safety Report 15562395 (Version 1)
Quarter: 2018Q4

REPORT INFORMATION
  Report Type: Spontaneous
  Country: FR (occurrence: FR)
  Receive Date: 20181029
  Receipt Date: 20181029
  Transmission Date: 20190205
  Serious: Yes (Other)
  Sender: FDA-Public Use
  Company Number: FR-PFIZER INC-2018427628

PATIENT
  Age: 49 Year
  Sex: Female
  Weight: 57 kg

DRUGS (1)
  1. XALKORI [Suspect]
     Active Substance: CRIZOTINIB
     Indication: BRONCHIAL CARCINOMA
     Dosage: 400 MG, 1X/DAY
     Route: 048
     Dates: start: 20170816

REACTIONS (3)
  - Photosensitivity reaction [Recovering/Resolving]
  - Skin papilloma [Recovering/Resolving]
  - Erythema [Recovering/Resolving]

NARRATIVE: CASE EVENT DATE: 20180321
